FAERS Safety Report 19489376 (Version 1)
Quarter: 2021Q3

REPORT INFORMATION
  Report Type: Report from Study
  Country: DE (occurrence: DE)
  Receive Date: 20210703
  Receipt Date: 20210703
  Transmission Date: 20211014
  Serious: Yes (Other)
  Sender: FDA-Public Use
  Company Number: NVSC2021DE143713

PATIENT
  Age: 57 Year
  Sex: Male

DRUGS (1)
  1. METFORMIN [Suspect]
     Active Substance: METFORMIN HYDROCHLORIDE
     Indication: PRODUCT USED FOR UNKNOWN INDICATION
     Dosage: UNK
     Route: 065

REACTIONS (10)
  - Mental impairment [Unknown]
  - Peripheral arterial occlusive disease [Unknown]
  - Thirst [Unknown]
  - Weight increased [Unknown]
  - Coronary artery disease [Unknown]
  - Memory impairment [Unknown]
  - Angina pectoris [Unknown]
  - Myocardial infarction [Unknown]
  - Diabetic retinopathy [Unknown]
  - Diabetes mellitus [Unknown]
